FAERS Safety Report 4442166-3 (Version None)
Quarter: 2004Q3

REPORT INFORMATION
  Report Type: 
  Country: None (occurrence: None)
  Receive Date: 20040901
  Receipt Date: 20040826
  Transmission Date: 20050211
  Serious: Yes (Life-Threatening)
  Sender: FDA-Public Use
  Company Number: 200412560GDS

PATIENT
  Sex: Female

DRUGS (5)
  1. CIPROFLOXACIN [Suspect]
     Dosage: 500 MG, TOTAL DAILY, ORAL
     Route: 048
     Dates: start: 20040809, end: 20040816
  2. THEO-DUR [Suspect]
     Dosage: 300 MG , TOTAL DAILY, ORAL
     Route: 048
     Dates: start: 19990101, end: 20040819
  3. LASIX [Concomitant]
  4. ZYLORIC [Concomitant]
  5. ACRIPTION [Concomitant]

REACTIONS (4)
  - CONVULSION [None]
  - DRUG INTERACTION [None]
  - HYPOKALAEMIA [None]
  - TACHYCARDIA [None]
